FAERS Safety Report 6493871-9 (Version None)
Quarter: 2009Q4

REPORT INFORMATION
  Report Type: 
  Country: None (occurrence: None)
  Receive Date: 20091214
  Receipt Date: 20081114
  Transmission Date: 20100525
  Serious: Yes (Other)
  Sender: FDA-Public Use
  Company Number: US-BRISTOL-MYERS SQUIBB COMPANY-14407324

PATIENT
  Age: 7 Decade
  Sex: Female

DRUGS (3)
  1. ABILIFY [Suspect]
     Indication: MAJOR DEPRESSION
     Dosage: STARTED WITH 2MG/DAY, INCREASED TO 5MG/DAY AND THEN TO 10MG/DAY.
  2. ABILIFY [Suspect]
     Indication: ANXIETY
     Dosage: STARTED WITH 2MG/DAY, INCREASED TO 5MG/DAY AND THEN TO 10MG/DAY.
  3. PAXIL [Concomitant]

REACTIONS (2)
  - CATATONIA [None]
  - COGNITIVE DISORDER [None]
